FAERS Safety Report 15143366 (Version 3)
Quarter: 2018Q3

REPORT INFORMATION
  Report Type: Spontaneous
  Country: DE (occurrence: DE)
  Receive Date: 20180713
  Receipt Date: 20180904
  Transmission Date: 20181010
  Serious: Yes (Hospitalization, Other)
  Sender: FDA-Public Use
  Company Number: DE-AUROBINDO-AUR-APL-2018-035294

PATIENT
  Age: 75 Year
  Sex: Female

DRUGS (3)
  1. SIMVASTATIN FILM?COATED TABLET [Suspect]
     Active Substance: SIMVASTATIN
     Indication: ATRIAL FIBRILLATION
     Dosage: 10 MILLIGRAM, ONCE A DAY
     Route: 048
  2. APIXABAN [Suspect]
     Active Substance: APIXABAN
     Indication: CEREBROVASCULAR ACCIDENT PROPHYLAXIS
     Dosage: ()
  3. APIXABAN [Suspect]
     Active Substance: APIXABAN
     Indication: ATRIAL FIBRILLATION
     Dosage: 10 MG, QD
     Route: 065

REACTIONS (7)
  - Rhabdomyolysis [Unknown]
  - Renal impairment [Unknown]
  - Drug half-life increased [Unknown]
  - Drug level increased [Unknown]
  - Muscular weakness [Unknown]
  - Hepatic function abnormal [Unknown]
  - Fall [Unknown]
